FAERS Safety Report 5326276-4 (Version None)
Quarter: 2007Q2

REPORT INFORMATION
  Report Type: 
  Country: None (occurrence: None)
  Receive Date: 20070514
  Receipt Date: 20070514
  Transmission Date: 20071010
  Serious: Yes (Hospitalization)
  Sender: FDA-Public Use
  Company Number: None

PATIENT
  Age: 79 Year
  Sex: Female
  Weight: 66.1 kg

DRUGS (13)
  1. AMITIZA [Suspect]
     Indication: CONSTIPATION
     Dosage: 24MCG DAILY PO
     Route: 048
  2. ASPIRIN [Concomitant]
  3. CALCIUM 500 + D [Concomitant]
  4. CENTRUM SILVER [Concomitant]
  5. CYANOCOBALAMIN [Concomitant]
  6. FEXOFENADINE [Concomitant]
  7. FISH OIL [Concomitant]
  8. FOLIC ACID [Concomitant]
  9. ACIPHEX [Concomitant]
  10. PREMARIN [Concomitant]
  11. NASONEX [Concomitant]
  12. LEVOTHYROXINE SODIUM [Concomitant]
  13. METHOTREXATE [Concomitant]

REACTIONS (5)
  - CHEST DISCOMFORT [None]
  - CHEST PAIN [None]
  - HYPERHIDROSIS [None]
  - JOINT SWELLING [None]
  - OEDEMA PERIPHERAL [None]
